FAERS Safety Report 8852901 (Version 1)
Quarter: 2012Q4

REPORT INFORMATION
  Report Type: 
  Country: US (occurrence: US)
  Receive Date: 20121022
  Receipt Date: 20121022
  Transmission Date: 20130627
  Serious: Yes (Life-Threatening, Hospitalization, Other)
  Sender: FDA-Public Use
  Company Number: US-009507513-1210USA007068

PATIENT

DRUGS (1)
  1. FOSAMAX [Suspect]
     Dosage: UNK

REACTIONS (4)
  - Femur fracture [Unknown]
  - Femur fracture [Unknown]
  - Surgery [Unknown]
  - Surgery [Unknown]
